FAERS Safety Report 6583308-3 (Version None)
Quarter: 2010Q1

REPORT INFORMATION
  Report Type: 
  Country: None (occurrence: None)
  Receive Date: 20100204
  Receipt Date: 20100125
  Transmission Date: 20100710
  Serious: Yes (Death, Life-Threatening)
  Sender: FDA-Public Use
  Company Number: 2010SP003643

PATIENT
  Age: 71 Year
  Sex: Male

DRUGS (6)
  1. INTEGRILIN [Suspect]
     Indication: ACUTE MYOCARDIAL INFARCTION
     Dosage: 19.4 M. INBO
     Dates: start: 20100101, end: 20100101
  2. INTEGRILIN [Suspect]
     Indication: ANTICOAGULANT THERAPY
     Dosage: 19.4 M. INBO
     Dates: start: 20100101, end: 20100101
  3. HEPARIN [Suspect]
     Indication: ACUTE MYOCARDIAL INFARCTION
     Dosage: 7500 IU NBO
     Dates: start: 20100101, end: 20100101
  4. HEPARIN [Suspect]
     Indication: ANTICOAGULANT THERAPY
     Dosage: 7500 IU NBO
     Dates: start: 20100101, end: 20100101
  5. ASPIRIN [Concomitant]
  6. CLOPIDOGREL [Concomitant]

REACTIONS (5)
  - CARDIOGENIC SHOCK [None]
  - CORONARY ARTERY OCCLUSION [None]
  - CORONARY ARTERY THROMBOSIS [None]
  - MULTI-ORGAN FAILURE [None]
  - PRODUCT QUALITY ISSUE [None]
